FAERS Safety Report 6405502-4 (Version None)
Quarter: 2009Q4

REPORT INFORMATION
  Report Type: 
  Country: None (occurrence: None)
  Receive Date: 20091019
  Receipt Date: 20090828
  Transmission Date: 20100525
  Serious: No
  Sender: FDA-Public Use
  Company Number: US-BAYER-200931647NA

PATIENT
  Sex: Female

DRUGS (2)
  1. YAZ [Suspect]
     Indication: DRUG USE FOR UNKNOWN INDICATION
     Route: 048
  2. LOW-OGESTREL-21 [Suspect]
     Indication: DRUG USE FOR UNKNOWN INDICATION
     Dosage: 0.3/30 - 28

REACTIONS (1)
  - MENSTRUATION DELAYED [None]
